FAERS Safety Report 4917038-8 (Version None)
Quarter: 2006Q1

REPORT INFORMATION
  Report Type: 
  Country: None (occurrence: None)
  Receive Date: 20060221
  Receipt Date: 20060208
  Transmission Date: 20060701
  Serious: Yes (Hospitalization)
  Sender: FDA-Public Use
  Company Number: 2006AC00275

PATIENT
  Age: 68 Year
  Sex: Female

DRUGS (2)
  1. GEFITINIB [Suspect]
     Indication: BREAST CANCER METASTATIC
     Route: 048
  2. EPIRUBICIN [Suspect]
     Indication: BREAST CANCER METASTATIC
     Dosage: CUMULATIVE DOSE OF 1140MG/M^2, 20 MIN INFUSION ONCE A WEEK
     Route: 042

REACTIONS (1)
  - CARDIOTOXICITY [None]
